FAERS Safety Report 23360677 (Version 2)
Quarter: 2024Q1

REPORT INFORMATION
  Report Type: Spontaneous
  Country: IT (occurrence: IT)
  Receive Date: 20240103
  Receipt Date: 20240111
  Transmission Date: 20240410
  Serious: Yes (Hospitalization)
  Sender: FDA-Public Use
  Company Number: None

PATIENT
  Age: 44 Year
  Sex: Female

DRUGS (3)
  1. CLONAZEPAM [Suspect]
     Active Substance: CLONAZEPAM
     Indication: Product used for unknown indication
     Dosage: DOSAGE: 2 VIALS OF RIVOTRIL 2.5 MG/ML 10 ML
     Dates: start: 20231211, end: 20231211
  2. DIAZEPAM [Suspect]
     Active Substance: DIAZEPAM
     Indication: Product used for unknown indication
     Dosage: DOSAGE: 1/2 BOTTLE DIAZEPAM 5 MG/ML 20 ML,
     Dates: start: 20231211, end: 20231211
  3. TRAZODONE HYDROCHLORIDE [Suspect]
     Active Substance: TRAZODONE HYDROCHLORIDE
     Indication: Product used for unknown indication
     Dosage: DOSAGE: 60 MG/ML 2 BOTTLES

REACTIONS (2)
  - Sopor [Recovering/Resolving]
  - Drug abuse [Unknown]

NARRATIVE: CASE EVENT DATE: 20231211
